FAERS Safety Report 16346109 (Version 1)
Quarter: 2019Q2

REPORT INFORMATION
  Report Type: Spontaneous
  Country: CN (occurrence: CN)
  Receive Date: 20190523
  Receipt Date: 20190523
  Transmission Date: 20190711
  Serious: Yes (Other)
  Sender: FDA-Public Use
  Company Number: CN-GILEAD-2019-0409282

PATIENT
  Sex: Male

DRUGS (5)
  1. HUANG KUI JIAO NANG [Concomitant]
  2. WARFARIN [Concomitant]
     Active Substance: WARFARIN
  3. EPCLUSA [Suspect]
     Active Substance: SOFOSBUVIR\VELPATASVIR
     Indication: PRODUCT USED FOR UNKNOWN INDICATION
     Dosage: 1 DOSAGE FORM, UNK
     Route: 048
     Dates: start: 20190504
  4. LEVOTHYROXINE SODIUM. [Concomitant]
     Active Substance: LEVOTHYROXINE SODIUM
  5. INSULIN [Concomitant]
     Active Substance: INSULIN NOS

REACTIONS (1)
  - Platelet count decreased [Not Recovered/Not Resolved]

NARRATIVE: CASE EVENT DATE: 20190519
